FAERS Safety Report 19726029 (Version 1)
Quarter: 2021Q3

REPORT INFORMATION
  Report Type: Not Available
  Country: US (occurrence: US)
  Receive Date: 20210819
  Receipt Date: 20210819
  Transmission Date: 20211014
  Serious: No
  Sender: FDA-Public Use
  Company Number: US-MANNKIND CORPORATION-2020MK000137

PATIENT
  Sex: Female

DRUGS (2)
  1. AFREZZA [Suspect]
     Active Substance: INSULIN HUMAN
     Dosage: 4 TO 8 UNITS PER MEAL AND AN ADDITIONAL 8 UNITS AT PM.  TOTAL 12 TO 35 UNITS PER DAY
  2. AFREZZA [Suspect]
     Active Substance: INSULIN HUMAN
     Indication: PRODUCT USED FOR UNKNOWN INDICATION
     Dosage: 4 TO 8 UNITS PER MEAL AND AN ADDITIONAL 8 UNITS AT PM.  TOTAL 12 TO 35 UNITS PER DAY

REACTIONS (2)
  - Choking [Unknown]
  - Cough [Unknown]
